FAERS Safety Report 19421354 (Version 1)
Quarter: 2021Q2

REPORT INFORMATION
  Report Type: Spontaneous
  Country: US (occurrence: US)
  Receive Date: 20210615
  Receipt Date: 20210615
  Transmission Date: 20210717
  Serious: Yes (Other)
  Sender: FDA-Public Use
  Company Number: US-ORGANON-O2106USA001180

PATIENT
  Sex: Female
  Weight: 78.91 kg

DRUGS (1)
  1. NEXPLANON [Suspect]
     Active Substance: ETONOGESTREL
     Dosage: 1 IMPLANT EVERY 3 YEARS
     Route: 059
     Dates: start: 20210322, end: 20210526

REACTIONS (3)
  - Device dislocation [Recovered/Resolved]
  - Implant site hypoaesthesia [Unknown]
  - Implant site paraesthesia [Unknown]

NARRATIVE: CASE EVENT DATE: 2021
